FAERS Safety Report 17666503 (Version 1)
Quarter: 2020Q2

REPORT INFORMATION
  Report Type: Spontaneous
  Country: US (occurrence: US)
  Receive Date: 20200414
  Receipt Date: 20200414
  Transmission Date: 20200713
  Serious: No
  Sender: FDA-Public Use
  Company Number: None

PATIENT
  Age: 80 Year
  Sex: Female
  Weight: 67.95 kg

DRUGS (9)
  1. IBRANCE [Suspect]
     Active Substance: PALBOCICLIB
     Indication: BREAST CANCER
     Route: 048
     Dates: start: 20200217, end: 20200414
  2. CHOLECALCIFEROL [Concomitant]
     Active Substance: CHOLECALCIFEROL
  3. IBRANCE 125MG , ORAL [Concomitant]
     Dates: start: 20200114, end: 20200217
  4. ATENOLOL 100MG, ORAL [Concomitant]
  5. LETROZOLE 2.5MG, ORAL [Concomitant]
     Dates: start: 20200114, end: 20200117
  6. WARFARIN 1MG, ORAL [Concomitant]
  7. FUROSEMIDE 40MG, ORAL [Concomitant]
  8. RAMIPRIL 10MG, ORAL [Concomitant]
  9. DIGOXIN 125MCG, ORAL [Concomitant]

REACTIONS (1)
  - Neutropenia [None]

NARRATIVE: CASE EVENT DATE: 20200414
